FAERS Safety Report 25917427 (Version 1)
Quarter: 2025Q4

REPORT INFORMATION
  Report Type: Spontaneous
  Country: US (occurrence: US)
  Receive Date: 20251014
  Receipt Date: 20251014
  Transmission Date: 20260118
  Serious: Yes (Other)
  Sender: STALLERGENES
  Company Number: US-STALCOR-2025-AER-02782

PATIENT
  Age: 19 Year
  Sex: Male
  Weight: 65.32 kg

DRUGS (1)
  1. PALFORZIA [Suspect]
     Active Substance: PEANUT
     Indication: Food allergy
     Route: 048

REACTIONS (3)
  - Abdominal discomfort [Unknown]
  - Throat irritation [Unknown]
  - Exposure to allergen [Unknown]

NARRATIVE: CASE EVENT DATE: 20250929
